FAERS Safety Report 6087415-3 (Version None)
Quarter: 2009Q1

REPORT INFORMATION
  Report Type: 
  Country: None (occurrence: None)
  Receive Date: 20090219
  Receipt Date: 20080617
  Transmission Date: 20090719
  Serious: Yes (Hospitalization)
  Sender: FDA-Public Use
  Company Number: 554879

PATIENT
  Age: 9 Year
  Sex: Male

DRUGS (2)
  1. KLONOPIN [Suspect]
     Indication: OPPOSITIONAL DEFIANT DISORDER
     Dosage: 0.75 MG DAILY 4 PER DAY
     Dates: start: 20070401
  2. RISPERDAL [Concomitant]

REACTIONS (8)
  - ABNORMAL BEHAVIOUR [None]
  - ANXIETY [None]
  - DISTURBANCE IN ATTENTION [None]
  - DRUG INEFFECTIVE [None]
  - FEELING ABNORMAL [None]
  - NERVOUSNESS [None]
  - POOR QUALITY SLEEP [None]
  - WRONG TECHNIQUE IN DRUG USAGE PROCESS [None]
